FAERS Safety Report 8969515 (Version 5)
Quarter: 2013Q1

REPORT INFORMATION
  Report Type: Spontaneous
  Country: US (occurrence: US)
  Receive Date: 20121218
  Receipt Date: 20130319
  Transmission Date: 20140127
  Serious: No
  Sender: FDA-Public Use
  Company Number: US-PFIZER INC-2012305252

PATIENT
  Age: 71 Year
  Sex: Male
  Weight: 99.77 kg

DRUGS (10)
  1. LISINOPRIL [Concomitant]
     Dosage: UNK
  2. CRESTOR [Concomitant]
     Dosage: UNK
  3. SUTENT [Suspect]
     Indication: RETINAL MELANOMA
     Dosage: 50 MG, 1X/DAY, FOR 21 DAYS ON/10 DAYS OFF
     Route: 048
     Dates: start: 20121128
  4. CISPLATIN [Suspect]
     Indication: RETINAL MELANOMA
     Dosage: TWO TIMES MONTHLY (FIRST TWO DAYS OF CYCLE)(9 MONTH X4MONTH)
     Route: 042
     Dates: start: 20121128, end: 20121129
  5. TAMOXIFEN CITRATE [Suspect]
     Indication: RETINAL MELANOMA
     Dosage: 80 MG, 2X/DAY, FOR THE FIRST SEVEN DAYS OF THE CYCLE
     Route: 048
     Dates: start: 20121128
  6. LORAZEPAM [Concomitant]
     Dosage: UNK
  7. COMPAZINE [Concomitant]
     Dosage: UNK
  8. GLIPIZIDE [Concomitant]
     Dosage: UNK
  9. METFORMIN [Concomitant]
     Dosage: UNK
  10. ZOFRAN [Concomitant]
     Indication: NAUSEA
     Dosage: 8 MG, 2X/DAY
     Route: 048

REACTIONS (13)
  - Off label use [Unknown]
  - Retching [Unknown]
  - Fatigue [Unknown]
  - Headache [Unknown]
  - Chest pain [Unknown]
  - Epistaxis [Unknown]
  - Skin burning sensation [Recovered/Resolved]
  - Glossodynia [Unknown]
  - Dysgeusia [Unknown]
  - Weight decreased [Unknown]
  - Nausea [Recovering/Resolving]
  - Vomiting [Recovered/Resolved]
  - Rash [Recovered/Resolved]
